FAERS Safety Report 24553555 (Version 1)
Quarter: 2024Q4

REPORT INFORMATION
  Report Type: Report from Study
  Country: US (occurrence: US)
  Receive Date: 20241028
  Receipt Date: 20241028
  Transmission Date: 20250114
  Serious: No
  Sender: ROCHE
  Company Number: US-ROCHE-3514107

PATIENT
  Age: 10 Year
  Sex: Male
  Weight: 30.84 kg

DRUGS (1)
  1. NUTROPIN AQ [Suspect]
     Active Substance: SOMATROPIN
     Indication: Hypopituitarism
     Dosage: (20MG/2ML (10 MG/ML)) 6 DAYS PER WEEK, LAST INJECTION DATE 27/SEP/2023
     Route: 058
     Dates: start: 20230730, end: 20230927

REACTIONS (2)
  - Off label use [Unknown]
  - No adverse event [Unknown]
